FAERS Safety Report 10014406 (Version 2)
Quarter: 2014Q1

REPORT INFORMATION
  Report Type: Report from Study
  Country: CA (occurrence: CA)
  Receive Date: 20140317
  Receipt Date: 20140317
  Transmission Date: 20141002
  Serious: Yes (Hospitalization, Other)
  Sender: FDA-Public Use
  Company Number: CA-BRISTOL-MYERS SQUIBB COMPANY-19632728

PATIENT
  Age: 56 Year
  Sex: Female

DRUGS (4)
  1. ORENCIA [Suspect]
     Indication: RHEUMATOID ARTHRITIS
     Dosage: 1DF=750 UNITS NOS?BATCH#3H64998?EXP#MAR2016?05MAR2014 INFUSION CANCELLED
     Dates: start: 20080327
  2. METHOTREXATE [Concomitant]
  3. SULFASALAZINE [Concomitant]
  4. HYDROCHLOROTHIAZIDE [Concomitant]

REACTIONS (4)
  - Gallbladder disorder [Unknown]
  - Intestinal polyp [Unknown]
  - Rectal haemorrhage [Unknown]
  - Abdominal pain [Not Recovered/Not Resolved]
